FAERS Safety Report 9171530 (Version 2)
Quarter: 2013Q2

REPORT INFORMATION
  Report Type: Spontaneous
  Country: JP (occurrence: JP)
  Receive Date: 20130319
  Receipt Date: 20130411
  Transmission Date: 20140414
  Serious: Yes (Other)
  Sender: FDA-Public Use
  Company Number: JP-ROCHE-1199750

PATIENT
  Sex: Female
  Weight: 46 kg

DRUGS (4)
  1. XELODA [Suspect]
     Indication: BREAST CANCER METASTATIC
     Dosage: 2 WEEKS ADMINISTRATION AND 1 WEEK REST
     Route: 048
     Dates: start: 20121226, end: 20130105
  2. PICIBANIL [Suspect]
     Indication: PLEURODESIS
     Dosage: 10KE/DAY
     Route: 038
     Dates: start: 20121128, end: 20121128
  3. LOXONIN [Concomitant]
     Indication: PROPHYLAXIS
     Route: 048
     Dates: start: 20121126, end: 20130105
  4. MUCOSTA [Concomitant]
     Indication: PROPHYLAXIS
     Route: 048
     Dates: start: 20121126, end: 20130105

REACTIONS (1)
  - Thrombocytopenic purpura [Not Recovered/Not Resolved]
